FAERS Safety Report 22755686 (Version 2)
Quarter: 2024Q1

REPORT INFORMATION
  Report Type: Spontaneous
  Country: JP (occurrence: None)
  Receive Date: 20230727
  Receipt Date: 20240209
  Transmission Date: 20240410
  Serious: Yes (Hospitalization, Other)
  Sender: FDA-Public Use
  Company Number: 2023A154541

PATIENT
  Age: 73 Year
  Sex: Male

DRUGS (3)
  1. IMFINZI [Suspect]
     Active Substance: DURVALUMAB
     Indication: Bile duct cancer
     Dosage: DOSE UNKNOWN
     Route: 041
     Dates: end: 20230623
  2. GEMCITABINE HYDROCHLORIDE [Concomitant]
     Active Substance: GEMCITABINE HYDROCHLORIDE
     Indication: Bile duct cancer
     Dosage: DOSE UNKNOWN
     Dates: end: 20230623
  3. CISPLATIN [Concomitant]
     Active Substance: CISPLATIN
     Indication: Bile duct cancer
     Dosage: DOSE UNKNOWN
     Dates: end: 20230623

REACTIONS (10)
  - Dehydration [Recovered/Resolved]
  - Hepatic encephalopathy [Unknown]
  - Feeling abnormal [Unknown]
  - Altered state of consciousness [Unknown]
  - Urinary incontinence [Unknown]
  - Hypoaesthesia [Unknown]
  - Apathy [Unknown]
  - Thyroxine free decreased [Unknown]
  - Blood sodium increased [Unknown]
  - Blood thyroid stimulating hormone decreased [Unknown]

NARRATIVE: CASE EVENT DATE: 20230601
